FAERS Safety Report 7298169-7 (Version None)
Quarter: 2011Q1

REPORT INFORMATION
  Report Type: 
  Country: None (occurrence: None)
  Receive Date: 20110125
  Receipt Date: 20110117
  Transmission Date: 20110831
  Serious: Yes (Hospitalization)
  Sender: FDA-Public Use
  Company Number: 2010026613

PATIENT
  Age: 57 Year
  Sex: Male

DRUGS (17)
  1. NEXIUM [Concomitant]
  2. MOTILIUM [Concomitant]
  3. ROVALCYTE (VALGANCICLOVIR) [Concomitant]
  4. BACTRIM [Concomitant]
  5. MAGNE-B6 (DYNAMAG) [Concomitant]
  6. CELLCEPT [Concomitant]
  7. ZITHROMAX [Concomitant]
  8. TRIFLUCAN (FLUCONAZOLE) [Concomitant]
  9. NOVOLOG [Concomitant]
  10. TARDYFERON(FERROUS SULFATE) [Concomitant]
  11. PRIVIGEN [Suspect]
     Indication: ANTIBODY TEST POSITIVE
     Dosage: SEE IMAGE
     Route: 042
     Dates: start: 20100924, end: 20100925
  12. PRIVIGEN [Suspect]
     Indication: ANTIBODY TEST POSITIVE
     Dosage: SEE IMAGE
     Route: 042
     Dates: start: 20100923, end: 20100923
  13. PROGRAF [Concomitant]
  14. ATARAX [Concomitant]
  15. ACETAMINOPHEN [Concomitant]
  16. MORPHINE SULFATE [Concomitant]
  17. ZOLPIDEM TARTRATE [Concomitant]

REACTIONS (9)
  - RESPIRATORY DISTRESS [None]
  - CHEST X-RAY ABNORMAL [None]
  - NON-CARDIOGENIC PULMONARY OEDEMA [None]
  - MALAISE [None]
  - HEADACHE [None]
  - OXYGEN SATURATION DECREASED [None]
  - COUGH [None]
  - DYSPNOEA [None]
  - PYREXIA [None]
